FAERS Safety Report 6523673-6 (Version None)
Quarter: 2009Q4

REPORT INFORMATION
  Report Type: 
  Country: None (occurrence: None)
  Receive Date: 20091222
  Receipt Date: 20091209
  Transmission Date: 20100525
  Serious: Yes (Other)
  Sender: FDA-Public Use
  Company Number: 1000010155

PATIENT
  Age: 49 Year
  Sex: Female

DRUGS (3)
  1. ESCITALOPRAM [Suspect]
     Dosage: 20 MG (0 MG, 1 IN 1 D),ORAL
     Route: 048
     Dates: start: 20081110, end: 20090928
  2. ESCITALOPRAM [Suspect]
     Dosage: 20 MG (0 MG, 1 IN 1 D),ORAL
     Route: 048
     Dates: start: 20081110
  3. SERAX [Concomitant]

REACTIONS (1)
  - CONVULSION [None]
